FAERS Safety Report 17769744 (Version 3)
Quarter: 2020Q4

REPORT INFORMATION
  Report Type: Report from Study
  Country: US (occurrence: US)
  Receive Date: 20200512
  Receipt Date: 20201211
  Transmission Date: 20210113
  Serious: No
  Sender: FDA-Public Use
  Company Number: NVSC2020US126344

PATIENT
  Sex: Male

DRUGS (3)
  1. COSENTYX [Suspect]
     Active Substance: SECUKINUMAB
     Indication: PSORIASIS
     Dosage: 300 MG, QMO
     Route: 058
  2. COSENTYX [Suspect]
     Active Substance: SECUKINUMAB
     Indication: PSORIATIC ARTHROPATHY
     Route: 058
  3. COSENTYX [Suspect]
     Active Substance: SECUKINUMAB
     Route: 058

REACTIONS (7)
  - Intervertebral disc protrusion [Unknown]
  - Arthropathy [Unknown]
  - Rash macular [Unknown]
  - Pruritus [Unknown]
  - Back pain [Unknown]
  - Psoriasis [Unknown]
  - Therapeutic product effect incomplete [Unknown]
